FAERS Safety Report 9353094 (Version 1)
Quarter: 2013Q2

REPORT INFORMATION
  Report Type: Spontaneous
  Country: US (occurrence: US)
  Receive Date: 20130618
  Receipt Date: 20130618
  Transmission Date: 20140414
  Serious: Yes (Life-Threatening)
  Sender: FDA-Public Use
  Company Number: US-NAPPMUNDI-USA-2013-0103337

PATIENT
  Sex: Female

DRUGS (1)
  1. MORPHINE SULFATE (SIMILAR TO NDA 19-516) [Suspect]
     Indication: PAIN
     Dosage: ONE DOSE OVER 10 YEARS AGO
     Route: 042

REACTIONS (2)
  - Cardiac arrest [Recovered/Resolved]
  - Drug hypersensitivity [Not Recovered/Not Resolved]
